FAERS Safety Report 5216452-3 (Version None)
Quarter: 2007Q1

REPORT INFORMATION
  Report Type: 
  Country: None (occurrence: None)
  Receive Date: 20070118
  Receipt Date: 20070108
  Transmission Date: 20070707
  Serious: Yes (Hospitalization)
  Sender: FDA-Public Use
  Company Number: 234722

PATIENT
  Age: 71 Year
  Sex: Female

DRUGS (2)
  1. ACTIVASE [Suspect]
     Indication: CEREBRAL INFARCTION
     Dosage: UNK, SINGLE, INTRAVENOUS
     Route: 042
     Dates: start: 20050405, end: 20050405
  2. ASPIRIN [Concomitant]

REACTIONS (7)
  - BLOOD POTASSIUM DECREASED [None]
  - CARDIAC FAILURE [None]
  - DRUG HYPERSENSITIVITY [None]
  - HYPERTENSIVE CRISIS [None]
  - INFUSION RELATED REACTION [None]
  - PNEUMONIA [None]
  - PROTHROMBIN TIME PROLONGED [None]
